FAERS Safety Report 15989812 (Version 1)
Quarter: 2019Q1

REPORT INFORMATION
  Report Type: Spontaneous
  Country: US (occurrence: US)
  Receive Date: 20190221
  Receipt Date: 20190221
  Transmission Date: 20190418
  Serious: No
  Sender: FDA-Public Use
  Company Number: US-BAYER-2019-025192

PATIENT

DRUGS (1)
  1. ALEVE [Suspect]
     Active Substance: NAPROXEN SODIUM
     Dosage: TABLET/CAPLET/GELCAPAS PER LABELED DIRECTIONS
     Dates: start: 201901

REACTIONS (4)
  - Therapeutic response shortened [None]
  - Lacrimation increased [None]
  - Poor quality sleep [None]
  - Abnormal behaviour [None]
